FAERS Safety Report 25085623 (Version 2)
Quarter: 2025Q1

REPORT INFORMATION
  Report Type: Spontaneous
  Country: DE (occurrence: DE)
  Receive Date: 20250317
  Receipt Date: 20250317
  Transmission Date: 20250409
  Serious: Yes (Life-Threatening, Other)
  Sender: NOVARTIS
  Company Number: DE-002147023-NVSC2025DE042878

PATIENT
  Sex: Female

DRUGS (1)
  1. KESIMPTA [Suspect]
     Active Substance: OFATUMUMAB
     Indication: Product used for unknown indication
     Dosage: 20 MG, QMO
     Route: 065
     Dates: start: 202410

REACTIONS (8)
  - Full blood count abnormal [Unknown]
  - Pneumonia [Unknown]
  - Malaise [Unknown]
  - C-reactive protein [Unknown]
  - Product dose omission issue [Unknown]
  - Myalgia [Unknown]
  - Bronchial secretion retention [Unknown]
  - Confusional state [Unknown]

NARRATIVE: CASE EVENT DATE: 20250201
